FAERS Safety Report 5000557-6 (Version None)
Quarter: 2006Q2

REPORT INFORMATION
  Report Type: 
  Country: None (occurrence: None)
  Receive Date: 20060512
  Receipt Date: 20051222
  Transmission Date: 20061013
  Serious: No
  Sender: FDA-Public Use
  Company Number: US-BRISTOL-MYERS SQUIBB COMPANY-13245378

PATIENT
  Age: 79 Year
  Sex: Male

DRUGS (1)
  1. ENDOXAN [Suspect]

REACTIONS (1)
  - RASH [None]
